FAERS Safety Report 13047400 (Version 1)
Quarter: 2016Q4

REPORT INFORMATION
  Report Type: Spontaneous
  Country: US (occurrence: US)
  Receive Date: 20161220
  Receipt Date: 20161220
  Transmission Date: 20170207
  Serious: Yes (Other)
  Sender: FDA-Public Use
  Company Number: US-BAYER-2016-238434

PATIENT
  Age: 86 Year
  Sex: Female

DRUGS (1)
  1. FINACEA [Suspect]
     Active Substance: AZELAIC ACID
     Dosage: UNK

REACTIONS (5)
  - Femur fracture [None]
  - Bone disorder [None]
  - Wrist fracture [None]
  - Rib fracture [None]
  - Ankle fracture [None]
